FAERS Safety Report 5959982-9 (Version None)
Quarter: 2008Q4

REPORT INFORMATION
  Report Type: 
  Country: None (occurrence: None)
  Receive Date: 20081120
  Receipt Date: 20081117
  Transmission Date: 20090506
  Serious: Yes (Hospitalization)
  Sender: FDA-Public Use
  Company Number: US-MERCK-0811USA02599

PATIENT
  Sex: Female

DRUGS (2)
  1. FOSAMAX [Suspect]
     Route: 065
     Dates: start: 20020101
  2. ACTONEL [Concomitant]
     Route: 065

REACTIONS (3)
  - COLITIS [None]
  - COMPLEX REGIONAL PAIN SYNDROME [None]
  - NEUROPATHY PERIPHERAL [None]
